FAERS Safety Report 10180727 (Version 1)
Quarter: 2014Q2

REPORT INFORMATION
  Report Type: Spontaneous
  Country: US (occurrence: US)
  Receive Date: 20140519
  Receipt Date: 20140519
  Transmission Date: 20141212
  Serious: No
  Sender: FDA-Public Use
  Company Number: US-AMGEN INC.-USASP2014018708

PATIENT
  Sex: Female

DRUGS (2)
  1. PROLIA [Suspect]
     Indication: OSTEOPOROSIS POSTMENOPAUSAL
     Dosage: UNK
     Route: 065
     Dates: start: 20130920
  2. PROLIA [Suspect]
     Indication: PROPHYLAXIS

REACTIONS (8)
  - Pain in jaw [Unknown]
  - Toothache [Unknown]
  - Headache [Unknown]
  - Pain [Unknown]
  - Mastication disorder [Unknown]
  - Pruritus [Unknown]
  - Rash [Not Recovered/Not Resolved]
  - Pain in extremity [Unknown]
